FAERS Safety Report 6866893-3 (Version None)
Quarter: 2010Q2

REPORT INFORMATION
  Report Type: 
  Country: None (occurrence: None)
  Receive Date: 20100607
  Receipt Date: 20100310
  Transmission Date: 20101027
  Serious: No
  Sender: FDA-Public Use
  Company Number: 2010-00330

PATIENT
  Age: 44 Year
  Sex: Female
  Weight: 90.7194 kg

DRUGS (5)
  1. ZICAM COLD REMEDY GEL SWABS [Suspect]
     Dosage: QD X 1 DAY FOR 2 DOSES
     Dates: start: 20100309, end: 20100310
  2. XOPENEX PER NEBULIZER [Concomitant]
  3. KLONOPIN [Concomitant]
  4. FLUTICASONE PROPIONATE [Concomitant]
  5. AUGMENTIN '125' [Concomitant]

REACTIONS (2)
  - AGEUSIA [None]
  - ANOSMIA [None]
